FAERS Safety Report 16240503 (Version 1)
Quarter: 2019Q2

REPORT INFORMATION
  Report Type: Spontaneous
  Country: CL (occurrence: CL)
  Receive Date: 20190425
  Receipt Date: 20190425
  Transmission Date: 20190711
  Serious: Yes (Life-Threatening)
  Sender: FDA-Public Use
  Company Number: CL-COLLEGIUM PHARMACEUTICAL, INC.-CL-2019COL000514

PATIENT
  Age: 76 Year
  Sex: Female

DRUGS (12)
  1. BREXOTIDE [Concomitant]
     Active Substance: FLUTICASONE PROPIONATE\SALMETEROL XINAFOATE
     Indication: CHRONIC OBSTRUCTIVE PULMONARY DISEASE
     Dosage: UNK
  2. LOSARTAN. [Concomitant]
     Active Substance: LOSARTAN
     Indication: HYPERTENSION
     Dosage: UNK
  3. AMLODIPINO                         /00972401/ [Concomitant]
     Active Substance: AMLODIPINE BESYLATE
     Indication: HYPERTENSION
     Dosage: UNK
  4. TAPENTADOL EXTENDED RELEASE [Suspect]
     Active Substance: TAPENTADOL
     Indication: FIBROMYALGIA
  5. FUROSEMIDA                         /00032601/ [Concomitant]
     Active Substance: FUROSEMIDE
     Indication: HYPERTENSION
     Dosage: UNK
  6. DULOXETINA                         /01749301/ [Concomitant]
     Active Substance: DULOXETINE
     Indication: FIBROMYALGIA
     Dosage: UNK
  7. TAPENTADOL EXTENDED RELEASE [Suspect]
     Active Substance: TAPENTADOL
     Indication: PAIN
     Dosage: 50 MG, BID
     Route: 048
     Dates: start: 20180927, end: 20180929
  8. BUDESONIDA [Concomitant]
     Indication: CHRONIC OBSTRUCTIVE PULMONARY DISEASE
     Dosage: UNK
  9. PREGABALINA [Concomitant]
     Active Substance: PREGABALIN
     Indication: FIBROMYALGIA
     Dosage: UNK
  10. AEROTROP                           /00391402/ [Concomitant]
     Indication: CHRONIC OBSTRUCTIVE PULMONARY DISEASE
     Dosage: UNK
     Dates: start: 20080110
  11. ZOPICLONA [Concomitant]
     Active Substance: ZOPICLONE
     Indication: INSOMNIA
     Dosage: UNK
  12. TAPENTADOL [Suspect]
     Active Substance: TAPENTADOL
     Indication: PAIN
     Dosage: 50 MG, BID
     Route: 048
     Dates: start: 20180927, end: 20180929

REACTIONS (2)
  - Suffocation feeling [Recovered/Resolved]
  - Dyspnoea [Recovered/Resolved]

NARRATIVE: CASE EVENT DATE: 20180927
